FAERS Safety Report 9519924 (Version 1)
Quarter: 2013Q1

REPORT INFORMATION
  Report Type: Spontaneous
  Country: US (occurrence: None)
  Receive Date: 20130305
  Receipt Date: 20130305
  Transmission Date: 20140127
  Serious: Yes (Other)
  Sender: FDA-Public Use
  Company Number: 163-21880-12010437

PATIENT
  Age: 76 Year
  Sex: Male

DRUGS (15)
  1. REVLIMID [Suspect]
     Indication: LYMPHOCYTIC LEUKAEMIA
     Dosage: 5 MG, 1 IN 2 D, PO
     Route: 048
     Dates: start: 20100715, end: 20120216
  2. DIPHENHYDRAMINE (DIPHENHYDRAMINE) (CAPSULES) [Concomitant]
  3. OFATUMUMAB (OFATUMUMAB) (UNKNOWN) [Concomitant]
  4. MEPERIDINE (PETHIDINE HYDROCHLORIDE) (UNKNOWN)? [Concomitant]
  5. METHYLPREDNISONE (METHYLPREDNISOLONE) (UNKNOWN)? [Concomitant]
  6. SODIUM CHLORIDE (SODIUM CHLORIDE) (UNKNOWN) [Concomitant]
  7. HYDROCODONE (HYDROCODONE) (TABLETS) [Concomitant]
  8. CIPROFLOXACIN (CIPROFLOXACIN) (TABLETS) [Concomitant]
  9. HYZAAR (HYZAAR) (TABLETS) [Concomitant]
  10. MULTIVITAMINS (MULTIVITAMINS) (UNKNOWN) [Concomitant]
  11. PRILOSEC (OMEPRAZOLE) (CAPSULES) [Concomitant]
  12. SPIRIVA (TIOTROPIUM) (UNKNOWN) [Concomitant]
  13. VALTREX (VALACICLOVIR HYDROCHLORIDE) (TABLETS) [Concomitant]
  14. VORICONAZOLE (VORICONZOLE) (TABLETS) [Concomitant]
  15. ACETAMINOPHEN (PARACETAMOL) (UNKNOWN) (PARACETAMOL) [Concomitant]

REACTIONS (3)
  - Platelet count decreased [None]
  - Lymphadenopathy [None]
  - White blood cell count increased [None]
